FAERS Safety Report 10101246 (Version 1)
Quarter: 2014Q2

REPORT INFORMATION
  Report Type: Spontaneous
  Country: US (occurrence: None)
  Receive Date: 20140423
  Receipt Date: 20140423
  Transmission Date: 20141212
  Serious: Yes (Hospitalization, Other)
  Sender: FDA-Public Use
  Company Number: None

PATIENT
  Age: 40 Year
  Sex: Male
  Weight: 90.72 kg

DRUGS (2)
  1. CIPROFLOXACIN [Suspect]
     Indication: GASTRIC DISORDER
     Route: 048
  2. CIPROFLOXACIN [Suspect]
     Indication: DIVERTICULITIS
     Route: 048

REACTIONS (4)
  - Tremor [None]
  - Anxiety [None]
  - Dizziness [None]
  - Eye disorder [None]
